FAERS Safety Report 7194327-0 (Version None)
Quarter: 2010Q4

REPORT INFORMATION
  Report Type: 
  Country: None (occurrence: None)
  Receive Date: 20101124
  Receipt Date: 20101013
  Transmission Date: 20110411
  Serious: No
  Sender: FDA-Public Use
  Company Number: 019958

PATIENT
  Sex: Female
  Weight: 51.1 kg

DRUGS (9)
  1. LACOSAMIDE [Suspect]
     Indication: CONVULSION
     Dosage: (100 MG BID ORAL) ; (150 MG BID ORAL) ; (200 MG BID ORAL)
     Route: 048
     Dates: start: 20100709, end: 20100806
  2. KEPPRA [Concomitant]
  3. ZONEGRAN [Concomitant]
  4. BACLOFEN [Concomitant]
  5. DILANTIN [Concomitant]
  6. M.V.I. [Concomitant]
  7. CALCIUM [Concomitant]
  8. ERGOCALCIFEROL [Concomitant]
  9. MIRALAX [Concomitant]

REACTIONS (1)
  - HYPOTONIA [None]
